FAERS Safety Report 7261067-9 (Version None)
Quarter: 2011Q1

REPORT INFORMATION
  Report Type: 
  Country: None (occurrence: None)
  Receive Date: 20110130
  Receipt Date: 20101227
  Transmission Date: 20110831
  Serious: Yes (Other)
  Sender: FDA-Public Use
  Company Number: US-ABBOTT-10P-163-0694152-00

PATIENT
  Sex: Male
  Weight: 54.48 kg

DRUGS (2)
  1. HUMIRA [Suspect]
     Indication: CROHN'S DISEASE
     Route: 058
     Dates: start: 20081101
  2. FLAGYL [Concomitant]
     Indication: PRODUCT USED FOR UNKNOWN INDICATION
     Dates: start: 20080801

REACTIONS (4)
  - FISTULA [None]
  - DRUG DOSE OMISSION [None]
  - ABDOMINAL PAIN [None]
  - ABSCESS [None]
